FAERS Safety Report 20745003 (Version 3)
Quarter: 2022Q2

REPORT INFORMATION
  Report Type: Spontaneous
  Country: US (occurrence: US)
  Receive Date: 20220425
  Receipt Date: 20220621
  Transmission Date: 20220721
  Serious: Yes (Life-Threatening, Other)
  Sender: FDA-Public Use
  Company Number: US-PFIZER INC-202200602317

PATIENT
  Age: 55 Year
  Sex: Female
  Weight: 83.91 kg

DRUGS (12)
  1. PRECEDEX [Suspect]
     Active Substance: DEXMEDETOMIDINE HYDROCHLORIDE
     Indication: Sedative therapy
     Dosage: UNK (QH IV CENTRAL LINE IJ + LC)
     Route: 042
     Dates: start: 20211007, end: 20211016
  2. PRECEDEX [Suspect]
     Active Substance: DEXMEDETOMIDINE HYDROCHLORIDE
     Indication: Anxiety
  3. PROPOFOL [Suspect]
     Active Substance: PROPOFOL
     Dosage: UNK
  4. ATIVAN [Suspect]
     Active Substance: LORAZEPAM
     Indication: Sedative therapy
     Dosage: UNK
  5. VALIUM [Suspect]
     Active Substance: DIAZEPAM
     Indication: Sedative therapy
     Dosage: EVERY 8 HOURS
  6. VERSED [Suspect]
     Active Substance: MIDAZOLAM HYDROCHLORIDE
     Indication: Sedative therapy
     Dosage: UNK
  7. BENADRYL [Concomitant]
     Active Substance: DIPHENHYDRAMINE HYDROCHLORIDE
     Dosage: 25 MG
  8. CLARITIN [Concomitant]
     Active Substance: LORATADINE
     Dosage: UNK
  9. GLUCOPHAGE [Concomitant]
     Active Substance: METFORMIN HYDROCHLORIDE
     Indication: Glucose tolerance impaired
     Dosage: 500 MG, DAILY
  10. LASIX [Concomitant]
     Active Substance: FUROSEMIDE
     Dosage: 40, DAILY  (IN THE AFTERNOON)
  11. LASIX [Concomitant]
     Active Substance: FUROSEMIDE
     Dosage: 20, DAILY ( (IN THE AFTERNOON)
  12. LOPRESSOR [Concomitant]
     Active Substance: METOPROLOL TARTRATE
     Indication: Hypertension
     Dosage: 50 MG, 2X/DAY

REACTIONS (5)
  - Product use issue [Unknown]
  - Sedation complication [Unknown]
  - Cardio-respiratory arrest [Unknown]
  - Multiple sclerosis [Unknown]
  - Drug hypersensitivity [Unknown]

NARRATIVE: CASE EVENT DATE: 20211007
